FAERS Safety Report 6764347-6 (Version None)
Quarter: 2010Q2

REPORT INFORMATION
  Report Type: 
  Country: None (occurrence: None)
  Receive Date: 20100610
  Receipt Date: 20100602
  Transmission Date: 20101027
  Serious: Yes (Hospitalization, Other)
  Sender: FDA-Public Use
  Company Number: DE-PFIZER INC-2010069005

PATIENT
  Sex: Male

DRUGS (3)
  1. SORTIS [Suspect]
     Indication: LIPIDS INCREASED
     Dosage: 60 MG, 1X/DAY IN THE EVENING
  2. MARCUMAR [Concomitant]
  3. EZETROL [Concomitant]

REACTIONS (5)
  - BLOOD CREATINE PHOSPHOKINASE INCREASED [None]
  - DEPRESSION [None]
  - GAIT DISTURBANCE [None]
  - MUSCULAR WEAKNESS [None]
  - MYALGIA [None]
